FAERS Safety Report 6406623-2 (Version None)
Quarter: 2009Q4

REPORT INFORMATION
  Report Type: 
  Country: None (occurrence: None)
  Receive Date: 20091014
  Receipt Date: 20090930
  Transmission Date: 20100525
  Serious: Yes (Death)
  Sender: FDA-Public Use
  Company Number: 2009AL006477

PATIENT
  Age: 65 Year
  Sex: Male

DRUGS (1)
  1. FEVERALL [Suspect]
     Indication: INFLUENZA LIKE ILLNESS
     Route: 054

REACTIONS (1)
  - ACUTE HEPATIC FAILURE [None]
